FAERS Safety Report 19773789 (Version 1)
Quarter: 2021Q3

REPORT INFORMATION
  Report Type: Spontaneous
  Country: AU (occurrence: AU)
  Receive Date: 20210901
  Receipt Date: 20210901
  Transmission Date: 20211014
  Serious: Yes (Life-Threatening, Hospitalization, Other)
  Sender: FDA-Public Use
  Company Number: NVSC2021AU196654

PATIENT
  Sex: Female

DRUGS (1)
  1. COSENTYX [Suspect]
     Active Substance: SECUKINUMAB
     Indication: PRODUCT USED FOR UNKNOWN INDICATION
     Dosage: 300 MG, QMO (2 X 150MG MONTHLY)
     Route: 058
     Dates: start: 202004

REACTIONS (6)
  - Sepsis [Unknown]
  - Intestinal perforation [Unknown]
  - Fatigue [Unknown]
  - Pain [Unknown]
  - Hernia [Unknown]
  - Malaise [Unknown]
